FAERS Safety Report 7132885-2 (Version None)
Quarter: 2010Q4

REPORT INFORMATION
  Report Type: 
  Country: None (occurrence: None)
  Receive Date: 20101202
  Receipt Date: 20101129
  Transmission Date: 20110411
  Serious: No
  Sender: FDA-Public Use
  Company Number: US-PFIZER INC-2010134082

PATIENT
  Sex: Female
  Weight: 84.3 kg

DRUGS (7)
  1. GEODON [Suspect]
     Indication: BIPOLAR I DISORDER
     Dosage: 240 MG, 1X/DAY
     Route: 048
     Dates: start: 20090220
  2. GEODON [Suspect]
     Indication: DEPRESSION
  3. EFFEXOR [Concomitant]
  4. LITHIUM [Concomitant]
  5. MIRAPEX [Concomitant]
  6. SEROQUEL [Concomitant]
  7. PROVIGIL [Concomitant]

REACTIONS (1)
  - SEXUAL DYSFUNCTION [None]
